FAERS Safety Report 9850333 (Version 1)
Quarter: 2014Q1

REPORT INFORMATION
  Report Type: Spontaneous
  Country: CH (occurrence: CH)
  Receive Date: 20140128
  Receipt Date: 20140128
  Transmission Date: 20141002
  Serious: Yes (Hospitalization)
  Sender: FDA-Public Use
  Company Number: CH-BAXTER-2014BAX003153

PATIENT
  Age: 60 Year
  Sex: Male

DRUGS (49)
  1. ENDOXAN 1 G [Suspect]
     Indication: BONE MARROW CONDITIONING REGIMEN
     Route: 041
     Dates: start: 20131119, end: 20131120
  2. UROMITEXAN MULTIDOSE 100 MG/1 ML [Suspect]
     Indication: PROPHYLAXIS
     Route: 041
     Dates: start: 20131119
  3. UROMITEXAN MULTIDOSE 100 MG/1 ML [Suspect]
     Route: 041
     Dates: start: 20131119, end: 20131120
  4. UROMITEXAN MULTIDOSE 100 MG/1 ML [Suspect]
     Route: 041
     Dates: start: 20131121, end: 20131121
  5. BUSULFAN [Suspect]
     Indication: BONE MARROW CONDITIONING REGIMEN
     Route: 041
     Dates: start: 20131121, end: 20131121
  6. BUSULFAN [Suspect]
     Route: 041
     Dates: start: 20131122, end: 20131124
  7. ATG FRESENIUS [Suspect]
     Indication: PROPHYLAXIS
     Route: 041
     Dates: start: 20131122
  8. ATG FRESENIUS [Suspect]
     Route: 041
     Dates: start: 20131124, end: 20131124
  9. METOTREXATE [Suspect]
     Indication: PROPHYLAXIS
     Route: 041
     Dates: start: 20131129, end: 20131202
  10. SANDIMMUM [Suspect]
     Indication: PROPHYLAXIS
     Route: 041
     Dates: start: 20131124, end: 20131126
  11. SANDIMMUM [Suspect]
     Route: 041
     Dates: start: 20131127, end: 20131130
  12. SANDIMMUM [Suspect]
     Route: 041
     Dates: start: 20131201
  13. SOLU MEDROL [Suspect]
     Indication: PROPHYLAXIS
     Route: 041
     Dates: start: 20131122, end: 20131124
  14. AMIKIN [Suspect]
     Indication: BACTERIAL INFECTION
     Route: 041
     Dates: start: 20131123, end: 20131125
  15. NOPIL [Suspect]
     Indication: PROPHYLAXIS
     Route: 048
     Dates: start: 201311
  16. CEFEPIM [Suspect]
     Indication: BACTERIAL INFECTION
     Route: 041
     Dates: start: 20131123, end: 20131129
  17. DIFLUCAN [Suspect]
     Indication: PROPHYLAXIS
     Route: 048
     Dates: start: 201311
  18. VALTREX [Suspect]
     Indication: PROPHYLAXIS
     Route: 048
     Dates: start: 20131118
  19. LASIX [Suspect]
     Indication: DIURETIC THERAPY
     Route: 041
     Dates: start: 20131119, end: 20131203
  20. LASIX [Suspect]
     Route: 041
     Dates: start: 20131204
  21. PANTOZOL [Suspect]
     Indication: PROPHYLAXIS
     Route: 048
     Dates: start: 20131118, end: 20131201
  22. PANTOZOL [Suspect]
     Route: 048
     Dates: start: 20131202
  23. ZYLORIC [Suspect]
     Indication: GOUT
     Route: 048
     Dates: start: 20131118, end: 20131126
  24. ALOXI [Suspect]
     Indication: NAUSEA
     Route: 041
     Dates: start: 20131119, end: 20131119
  25. ALOXI [Suspect]
     Indication: VOMITING
  26. EMEND [Suspect]
     Indication: NAUSEA
     Route: 041
     Dates: start: 20131119
  27. EMEND [Suspect]
     Indication: VOMITING
     Route: 041
     Dates: start: 20131120, end: 20131128
  28. MERONEM [Suspect]
     Indication: BACTERIAL INFECTION
     Route: 041
     Dates: start: 20131202
  29. ZOVIRAX [Suspect]
     Indication: PROPHYLAXIS
     Route: 041
     Dates: start: 20131201
  30. ZOVIRAX [Suspect]
     Route: 042
     Dates: start: 20131202
  31. ATORVASTATIN [Suspect]
     Indication: HYPERLIPIDAEMIA
     Route: 048
     Dates: start: 20131118, end: 20131118
  32. ASPIRIN [Suspect]
     Indication: PROPHYLAXIS
     Route: 048
     Dates: start: 20131118, end: 20131122
  33. FLAMON [Suspect]
     Indication: ESSENTIAL HYPERTENSION
     Route: 048
     Dates: start: 20131118, end: 20131127
  34. FLAMON [Suspect]
     Route: 048
     Dates: start: 20131128, end: 20131202
  35. TRIATEC [Suspect]
     Indication: ESSENTIAL HYPERTENSION
     Route: 048
     Dates: start: 20131122
  36. TRIATEC [Suspect]
     Dosage: ALTERNATING 1 OR 2 TIMES/DAY
     Route: 048
     Dates: start: 20131201
  37. SOLU CORTEF [Suspect]
     Indication: PROPHYLAXIS
     Route: 041
     Dates: start: 20131128, end: 20131128
  38. TAZOBAC [Suspect]
     Indication: BACTERIAL INFECTION
     Route: 041
     Dates: start: 20131129, end: 20131201
  39. TRANDATE [Suspect]
     Indication: ESSENTIAL HYPERTENSION
     Route: 041
     Dates: start: 20131201, end: 20131203
  40. TAVEGYL [Concomitant]
     Indication: PRODUCT USED FOR UNKNOWN INDICATION
     Route: 065
  41. FORTECORTIN [Concomitant]
     Indication: PRODUCT USED FOR UNKNOWN INDICATION
     Route: 065
  42. HEPARIN [Concomitant]
     Indication: PRODUCT USED FOR UNKNOWN INDICATION
     Route: 065
  43. PASPERTIN [Concomitant]
     Indication: PRODUCT USED FOR UNKNOWN INDICATION
     Route: 065
  44. FLATULEX [Concomitant]
     Indication: PRODUCT USED FOR UNKNOWN INDICATION
     Route: 065
  45. DUSPATALIN [Concomitant]
     Indication: PRODUCT USED FOR UNKNOWN INDICATION
     Route: 065
  46. LAXOBERON [Concomitant]
     Indication: PRODUCT USED FOR UNKNOWN INDICATION
     Route: 065
  47. LEUCOVORIN [Concomitant]
     Indication: PRODUCT USED FOR UNKNOWN INDICATION
     Route: 065
  48. URSOFALK [Concomitant]
     Indication: PRODUCT USED FOR UNKNOWN INDICATION
     Route: 065
  49. DEFIBROTIDE [Concomitant]
     Indication: PRODUCT USED FOR UNKNOWN INDICATION
     Route: 065

REACTIONS (2)
  - Haemolysis [Unknown]
  - Hepatic enzyme increased [Recovering/Resolving]
